FAERS Safety Report 25347617 (Version 2)
Quarter: 2025Q2

REPORT INFORMATION
  Report Type: Report from Study
  Country: US (occurrence: US)
  Receive Date: 20250522
  Receipt Date: 20250609
  Transmission Date: 20250716
  Serious: No
  Sender: PFIZER
  Company Number: US-PFIZER INC-PV202500061112

PATIENT
  Age: 69 Year
  Sex: Female

DRUGS (1)
  1. CADUET [Suspect]
     Active Substance: AMLODIPINE BESYLATE\ATORVASTATIN CALCIUM
     Dosage: TAKE 1/2 TABLET ORALLY ONCE A DAY
     Route: 048

REACTIONS (1)
  - Wrong technique in product usage process [Unknown]
